FAERS Safety Report 20102511 (Version 1)
Quarter: 2021Q4

REPORT INFORMATION
  Report Type: Spontaneous
  Country: KE (occurrence: KE)
  Receive Date: 20211123
  Receipt Date: 20211123
  Transmission Date: 20220303
  Serious: Yes (Life-Threatening)
  Sender: FDA-Public Use
  Company Number: KE-ViiV Healthcare Limited-KE2021GSK232422

PATIENT
  Age: 70 Year
  Sex: Male

DRUGS (11)
  1. WARFARIN [Interacting]
     Active Substance: WARFARIN
     Indication: Deep vein thrombosis
     Dosage: 9 MG, QD (63 MG PER WEEK)
     Dates: start: 201303
  2. WARFARIN [Interacting]
     Active Substance: WARFARIN
     Dosage: UNK (70 MG PER WEEK)
  3. WARFARIN [Interacting]
     Active Substance: WARFARIN
     Dosage: UNK (56 MG PER WEEK)
  4. WARFARIN [Interacting]
     Active Substance: WARFARIN
     Dosage: UNK (35 MG PER WEEK.)
  5. WARFARIN [Interacting]
     Active Substance: WARFARIN
     Dosage: UNK (42 MG PER WEEK)
  6. LAMIVUDINE [Suspect]
     Active Substance: LAMIVUDINE
     Indication: HIV infection
     Dosage: UNK
     Dates: start: 2007
  7. ZIDOVUDINE [Suspect]
     Active Substance: ZIDOVUDINE
     Indication: HIV infection
     Dosage: UNK
     Dates: start: 200909, end: 201812
  8. NEVIRAPINE [Interacting]
     Active Substance: NEVIRAPINE
     Indication: HIV infection
     Dosage: UNK
     Dates: start: 2007, end: 201812
  9. DOLUTEGRAVIR [Concomitant]
     Active Substance: DOLUTEGRAVIR
     Indication: HIV infection
     Dosage: UNK
     Dates: start: 201812
  10. TENOFOVIR DISOPROXIL FUMARATE [Concomitant]
     Active Substance: TENOFOVIR DISOPROXIL FUMARATE
     Indication: HIV infection
     Dosage: UNK
     Dates: start: 201812
  11. SULFAMETHOXAZOLE\TRIMETHOPRIM [Concomitant]
     Active Substance: SULFAMETHOXAZOLE\TRIMETHOPRIM
     Indication: Product used for unknown indication
     Dosage: UNK

REACTIONS (3)
  - Anticoagulation drug level above therapeutic [Recovered/Resolved]
  - Virologic failure [Recovered/Resolved]
  - Drug interaction [Unknown]
